FAERS Safety Report 23263465 (Version 1)
Quarter: 2023Q4

REPORT INFORMATION
  Report Type: Spontaneous
  Country: PL (occurrence: None)
  Receive Date: 20231204
  Receipt Date: 20231204
  Transmission Date: 20240110
  Serious: Yes (Life-Threatening, Hospitalization, Disabling, Other)
  Sender: FDA-Public Use
  Company Number: None

PATIENT
  Age: 31 Year
  Sex: Female
  Weight: 73 kg

DRUGS (22)
  1. CIPROFLOXACIN HYDROCHLORIDE [Suspect]
     Active Substance: CIPROFLOXACIN HYDROCHLORIDE
     Indication: Postoperative care
     Dates: start: 20150525, end: 20150601
  2. CIPROFLOXACIN HYDROCHLORIDE [Suspect]
     Active Substance: CIPROFLOXACIN HYDROCHLORIDE
     Indication: Knee operation
  3. CIPROFLOXACIN HYDROCHLORIDE [Suspect]
     Active Substance: CIPROFLOXACIN HYDROCHLORIDE
     Indication: Antibiotic prophylaxis
  4. Vitamin IV [Concomitant]
  5. UNSPECIFIED INGREDIENT [Concomitant]
     Active Substance: UNSPECIFIED INGREDIENT
  6. Normobaric chamber [Concomitant]
  7. VITAMIN B [Concomitant]
     Active Substance: VITAMIN B
  8. VITAMIN D [Concomitant]
     Active Substance: VITAMIN D NOS
  9. VITAMIN K [Concomitant]
     Active Substance: PHYTONADIONE
  10. VITAMIN A [Concomitant]
     Active Substance: VITAMIN A
  11. VITAMIN E [Concomitant]
     Active Substance: .ALPHA.-TOCOPHEROL
  12. DIETARY SUPPLEMENT\UBIDECARENONE [Concomitant]
     Active Substance: DIETARY SUPPLEMENT\UBIDECARENONE
  13. VITAMIN C [Concomitant]
     Active Substance: ASCORBIC ACID
  14. SELENIUM [Concomitant]
     Active Substance: SELENIUM
  15. VITAMINS [Concomitant]
     Active Substance: VITAMINS
  16. SILICON [Concomitant]
     Active Substance: SILICON
  17. COLAGEN [Concomitant]
  18. HERBALS [Concomitant]
     Active Substance: HERBALS
  19. TETRAHYDROZOLINE HYDROCHLORIDE [Concomitant]
     Active Substance: TETRAHYDROZOLINE HYDROCHLORIDE
  20. PROLINE [Concomitant]
     Active Substance: PROLINE
  21. Bromelanine [Concomitant]
  22. Quercitine [Concomitant]

REACTIONS (15)
  - Toxicity to various agents [None]
  - Collagen disorder [None]
  - Tendon disorder [None]
  - Ligament disorder [None]
  - Muscle rupture [None]
  - Tendon injury [None]
  - Ligament rupture [None]
  - Insomnia [None]
  - Depression [None]
  - Suicidal ideation [None]
  - Gastrointestinal disorder [None]
  - Gait inability [None]
  - Bedridden [None]
  - Arrhythmia [None]
  - Cardiac valve disease [None]

NARRATIVE: CASE EVENT DATE: 20150525
